FAERS Safety Report 4876376-8 (Version None)
Quarter: 2006Q1

REPORT INFORMATION
  Report Type: 
  Country: None (occurrence: None)
  Receive Date: 20060110
  Receipt Date: 20051201
  Transmission Date: 20060701
  Serious: Yes (Hospitalization, Other)
  Sender: FDA-Public Use
  Company Number: PHFR2005GB03920

PATIENT
  Age: 56 Year
  Sex: Male

DRUGS (1)
  1. CLOZARIL [Suspect]
     Indication: SCHIZOPHRENIA
     Dosage: 100 MG, BID
     Route: 048
     Dates: start: 20051117, end: 20051223

REACTIONS (6)
  - ABDOMINAL PAIN [None]
  - ELECTROCARDIOGRAM ABNORMAL [None]
  - HEADACHE [None]
  - MYOCARDIAL ISCHAEMIA [None]
  - TACHYARRHYTHMIA [None]
  - TACHYCARDIA [None]
